FAERS Safety Report 18604240 (Version 1)
Quarter: 2020Q4

REPORT INFORMATION
  Report Type: Spontaneous
  Country: US (occurrence: US)
  Receive Date: 20201211
  Receipt Date: 20201211
  Transmission Date: 20210114
  Serious: No
  Sender: FDA-Public Use
  Company Number: None

PATIENT
  Sex: Female
  Weight: 62.4 kg

DRUGS (1)
  1. ASPIRIN. [Suspect]
     Active Substance: ASPIRIN

REACTIONS (5)
  - Breast cancer metastatic [None]
  - Metastases to liver [None]
  - Metastases to bone [None]
  - Lymphadenopathy [None]
  - Disease progression [None]

NARRATIVE: CASE EVENT DATE: 20191205
